FAERS Safety Report 6728338-3 (Version None)
Quarter: 2010Q2

REPORT INFORMATION
  Report Type: 
  Country: None (occurrence: None)
  Receive Date: 20100517
  Receipt Date: 20100507
  Transmission Date: 20101027
  Serious: Yes (Death)
  Sender: FDA-Public Use
  Company Number: US-BAXTER-2010BH012365

PATIENT
  Age: 71 Year
  Sex: Male

DRUGS (1)
  1. DIANEAL [Suspect]
     Indication: PERITONEAL DIALYSIS
     Route: 033
     Dates: start: 19900101, end: 20100430

REACTIONS (2)
  - COLON CANCER METASTATIC [None]
  - HEPATIC CANCER METASTATIC [None]
